FAERS Safety Report 6395867-4 (Version None)
Quarter: 2009Q4

REPORT INFORMATION
  Report Type: 
  Country: None (occurrence: None)
  Receive Date: 20091009
  Receipt Date: 20090721
  Transmission Date: 20100525
  Serious: No
  Sender: FDA-Public Use
  Company Number: A0799521A

PATIENT
  Age: 84 Year
  Sex: Female

DRUGS (1)
  1. TYKERB [Suspect]
     Dosage: 1250MG AT NIGHT
     Route: 048
     Dates: start: 20090707

REACTIONS (4)
  - DIARRHOEA [None]
  - NAUSEA [None]
  - VOMITING [None]
  - WEIGHT DECREASED [None]
